FAERS Safety Report 5199666-0 (Version None)
Quarter: 2007Q1

REPORT INFORMATION
  Report Type: 
  Country: None (occurrence: None)
  Receive Date: 20070103
  Receipt Date: 20070103
  Transmission Date: 20070707
  Serious: Yes (Disabling)
  Sender: FDA-Public Use
  Company Number: None

PATIENT
  Age: 3 Month
  Sex: Male
  Weight: 3.1752 kg

DRUGS (1)
  1. REGLAN [Suspect]
     Indication: GASTROOESOPHAGEAL REFLUX DISEASE
     Dosage: 0.5 ML   4 TIMES DAILY  PO
     Route: 048
     Dates: start: 20060709, end: 20061006

REACTIONS (2)
  - INSOMNIA [None]
  - TARDIVE DYSKINESIA [None]
